FAERS Safety Report 14035081 (Version 2)
Quarter: 2018Q1

REPORT INFORMATION
  Report Type: Spontaneous
  Country: US (occurrence: US)
  Receive Date: 20171003
  Receipt Date: 20180102
  Transmission Date: 20180508
  Serious: No
  Sender: FDA-Public Use
  Company Number: US-GALDERMA-US17007739

PATIENT
  Age: 60 Year
  Sex: Female

DRUGS (4)
  1. SOOLANTRA [Suspect]
     Active Substance: IVERMECTIN
     Indication: ROSACEA
     Route: 061
     Dates: start: 20170830, end: 20170901
  2. LOSARTAN. [Concomitant]
     Active Substance: LOSARTAN
     Dates: start: 2015
  3. SOOLANTRA [Suspect]
     Active Substance: IVERMECTIN
     Indication: ACNE CYSTIC
  4. AMOXICILLIN. [Suspect]
     Active Substance: AMOXICILLIN
     Indication: ROSACEA
     Dosage: 500 MG
     Route: 048
     Dates: start: 20170830, end: 20170920

REACTIONS (3)
  - Erythema [Not Recovered/Not Resolved]
  - Dermatitis [Not Recovered/Not Resolved]
  - Skin burning sensation [Recovered/Resolved]

NARRATIVE: CASE EVENT DATE: 20170901
